FAERS Safety Report 24770290 (Version 1)
Quarter: 2024Q4

REPORT INFORMATION
  Report Type: Spontaneous
  Country: US (occurrence: None)
  Receive Date: 20241224
  Receipt Date: 20241224
  Transmission Date: 20250114
  Serious: Yes (Hospitalization)
  Sender: Public
  Company Number: None

PATIENT
  Age: 75 Year
  Sex: Female
  Weight: 112.9 kg

DRUGS (1)
  1. TECHNETIUM TC-99M TILMANOCEPT [Suspect]
     Active Substance: TECHNETIUM TC-99M TILMANOCEPT
     Dates: end: 20240829

REACTIONS (3)
  - Drain site complication [None]
  - Erythema [None]
  - Swelling [None]

NARRATIVE: CASE EVENT DATE: 20241107
